FAERS Safety Report 14800061 (Version 2)
Quarter: 2019Q3

REPORT INFORMATION
  Report Type: Spontaneous
  Country: DE (occurrence: DE)
  Receive Date: 20180424
  Receipt Date: 20190717
  Transmission Date: 20191004
  Serious: Yes (Hospitalization, Other)
  Sender: FDA-Public Use
  Company Number: DE-JNJFOC-20180428707

PATIENT
  Age: 89 Year
  Sex: Male
  Weight: 91 kg

DRUGS (16)
  1. PANTOPRAZOLE [Concomitant]
     Active Substance: PANTOPRAZOLE
     Route: 048
  2. MACROGOL [Concomitant]
     Active Substance: POLYETHYLENE GLYCOLS
     Route: 048
  3. ARLEVERT [Concomitant]
     Active Substance: CINNARIZINE\DIMENHYDRINATE
     Route: 048
  4. SULPIRIDE [Concomitant]
     Active Substance: SULPIRIDE
     Route: 048
  5. QUETIAPINE. [Concomitant]
     Active Substance: QUETIAPINE
     Route: 048
  6. FOLSAN [Concomitant]
     Active Substance: FOLIC ACID
     Route: 048
  7. SEROQUEL [Concomitant]
     Active Substance: QUETIAPINE FUMARATE
     Route: 048
  8. XARELTO [Suspect]
     Active Substance: RIVAROXABAN
     Indication: PRODUCT USED FOR UNKNOWN INDICATION
     Route: 048
  9. TAMSULOSIN [Concomitant]
     Active Substance: TAMSULOSIN
     Route: 048
  10. METAMIZOLE [Concomitant]
     Active Substance: METAMIZOLE
     Route: 048
  11. METOCLOPRAMIDE HYDROCHLORIDE. [Concomitant]
     Active Substance: METOCLOPRAMIDE HYDROCHLORIDE
     Route: 065
  12. SPIRONOLACTON [Concomitant]
     Active Substance: SPIRONOLACTONE
     Route: 048
  13. TOREM [Concomitant]
     Active Substance: TORSEMIDE
     Route: 048
  14. NEBILET [Concomitant]
     Active Substance: NEBIVOLOL
     Route: 048
  15. MEMANTINE. [Concomitant]
     Active Substance: MEMANTINE
     Route: 048
  16. XARELTO [Suspect]
     Active Substance: RIVAROXABAN
     Route: 048

REACTIONS (5)
  - Fatigue [Unknown]
  - Gastrointestinal haemorrhage [Unknown]
  - Haematochezia [Unknown]
  - Dyschezia [Unknown]
  - General physical health deterioration [Unknown]
